FAERS Safety Report 7328341-9 (Version None)
Quarter: 2011Q1

REPORT INFORMATION
  Report Type: 
  Country: None (occurrence: None)
  Receive Date: 20110303
  Receipt Date: 20110221
  Transmission Date: 20110831
  Serious: Yes (Hospitalization, Other)
  Sender: FDA-Public Use
  Company Number: FR-JNJFOC-20101001031

PATIENT
  Age: 21 Year
  Sex: Female
  Weight: 50 kg

DRUGS (21)
  1. REMICADE [Suspect]
     Dosage: ALSO REPORTED AS INITIATED IN ^2006 OR 2008^
     Route: 042
  2. REMICADE [Suspect]
     Dosage: ALSO REPORTED AS INITIATED IN ^2006 OR 2008^
     Route: 042
  3. REMICADE [Suspect]
     Dosage: ALSO REPORTED AS INITIATED IN ^2006 OR 2008^
     Route: 042
  4. REMICADE [Suspect]
     Dosage: ALSO REPORTED AS INITIATED IN ^2006 OR 2008^
     Route: 042
  5. REMICADE [Suspect]
     Dosage: ALSO REPORTED AS INITIATED IN ^2006 OR 2008^
     Route: 042
  6. REMICADE [Suspect]
     Dosage: ALSO REPORTED AS INITIATED IN ^2006 OR 2008^
     Route: 042
  7. REMICADE [Suspect]
     Dosage: ALSO REPORTED AS INITIATED IN ^2006 OR 2008^
     Route: 042
  8. REMICADE [Suspect]
     Dosage: ALSO REPORTED AS INITIATED IN ^2006 OR 2008^
     Route: 042
  9. REMICADE [Suspect]
     Dosage: ALSO REPORTED AS INITIATED IN ^2006 OR 2008^
     Route: 042
  10. REMICADE [Suspect]
     Dosage: ALSO REPORTED AS INITIATED IN ^2006 OR 2008^
     Route: 042
  11. REMICADE [Suspect]
     Dosage: ALSO REPORTED AS INITIATED IN ^2006 OR 2008^
     Route: 042
  12. REMICADE [Suspect]
     Dosage: ALSO REPORTED AS INITIATED IN ^2006 OR 2008^
     Route: 042
  13. REMICADE [Suspect]
     Dosage: ALSO REPORTED AS INITIATED IN ^2006 OR 2008^
     Route: 042
  14. REMICADE [Suspect]
     Dosage: ALSO REPORTED AS INITIATED IN ^2006 OR 2008^
     Route: 042
  15. REMICADE [Suspect]
     Dosage: ALSO REPORTED AS INITIATED IN ^2006 OR 2008^
     Route: 042
  16. REMICADE [Suspect]
     Dosage: ALSO REPORTED AS INITIATED IN ^2006 OR 2008^
     Route: 042
  17. REMICADE [Suspect]
     Dosage: ALSO REPORTED AS INITIATED IN ^2006 OR 2008^
     Route: 042
  18. REMICADE [Suspect]
     Dosage: ALSO REPORTED AS INITIATED IN ^2006 OR 2008^
     Route: 042
  19. REMICADE [Suspect]
     Dosage: ALSO REPORTED AS INITIATED IN ^2006 OR 2008^
     Route: 042
  20. REMICADE [Suspect]
     Indication: COLITIS ULCERATIVE
     Dosage: ALSO REPORTED AS INITIATED IN ^2006 OR 2008^
     Route: 042
  21. REMICADE [Suspect]
     Dosage: ALSO REPORTED AS INITIATED IN ^2006 OR 2008^
     Route: 042

REACTIONS (4)
  - ANTIPHOSPHOLIPID ANTIBODIES POSITIVE [None]
  - KAOLIN CEPHALIN CLOTTING TIME PROLONGED [None]
  - RHEUMATOID ARTHRITIS [None]
  - SKIN PLAQUE [None]
